FAERS Safety Report 6579071-2 (Version None)
Quarter: 2010Q1

REPORT INFORMATION
  Report Type: 
  Country: None (occurrence: None)
  Receive Date: 20100212
  Receipt Date: 20100212
  Transmission Date: 20100710
  Serious: Yes (Hospitalization)
  Sender: FDA-Public Use
  Company Number: PHHO2007GB02748

PATIENT
  Sex: Male
  Weight: 62.5 kg

DRUGS (6)
  1. STARLIX [Suspect]
     Indication: GLUCOSE TOLERANCE IMPAIRED
     Dosage: LEVEL 1
     Route: 048
     Dates: start: 20030129
  2. STARLIX [Suspect]
     Dosage: LEVEL 2
     Route: 048
     Dates: end: 20070208
  3. VALSARTAN [Suspect]
     Indication: CARDIOVASCULAR DISORDER
     Dosage: LEVEL 1
     Route: 048
     Dates: start: 20030129
  4. VALSARTAN [Suspect]
     Dosage: LEVEL 2
     Route: 048
     Dates: end: 20070208
  5. ADIZEM-XL [Concomitant]
     Indication: HYPERTENSION
     Dosage: 300 MG, QD
     Route: 048
     Dates: start: 19950131
  6. SIMVASTATIN [Concomitant]
     Indication: HYPERCHOLESTEROLAEMIA
     Dosage: 20 MG, QD
     Route: 048
     Dates: start: 20060529

REACTIONS (3)
  - CONVULSION [None]
  - FALL [None]
  - HYPOGLYCAEMIA [None]
